FAERS Safety Report 24755262 (Version 2)
Quarter: 2024Q4

REPORT INFORMATION
  Report Type: Spontaneous
  Country: US (occurrence: US)
  Receive Date: 20241219
  Receipt Date: 20241229
  Transmission Date: 20250114
  Serious: No
  Sender: JOHNSON AND JOHNSON
  Company Number: US-KENVUE-20241106150

PATIENT
  Age: 3 Year
  Sex: Female

DRUGS (1)
  1. ACETAMINOPHEN [Suspect]
     Active Substance: ACETAMINOPHEN
     Indication: Accidental exposure to product
     Route: 065

REACTIONS (2)
  - Accidental exposure to product by child [Unknown]
  - Failure of child resistant product closure [Unknown]
